FAERS Safety Report 23913269 (Version 1)
Quarter: 2024Q2

REPORT INFORMATION
  Report Type: Report from Study
  Country: CA (occurrence: CA)
  Receive Date: 20240529
  Receipt Date: 20240529
  Transmission Date: 20240716
  Serious: Yes (Hospitalization)
  Sender: FDA-Public Use
  Company Number: CA-002147023-NVSC2024CA097218

PATIENT
  Age: 60 Year
  Sex: Female

DRUGS (2)
  1. KISQALI [Suspect]
     Active Substance: RIBOCICLIB
     Indication: Breast cancer metastatic
     Dosage: 400 MG
     Route: 048
     Dates: start: 20240424
  2. LETROZOLE [Suspect]
     Active Substance: LETROZOLE
     Indication: Product used for unknown indication
     Dosage: UNK
     Route: 065

REACTIONS (8)
  - Nasopharyngitis [Unknown]
  - Pyrexia [Unknown]
  - Cough [Unknown]
  - Vomiting [Unknown]
  - Dizziness [Unknown]
  - Diarrhoea [Unknown]
  - Nausea [Unknown]
  - Dehydration [Unknown]
